FAERS Safety Report 25731017 (Version 1)
Quarter: 2025Q3

REPORT INFORMATION
  Report Type: Spontaneous
  Country: CA (occurrence: CA)
  Receive Date: 20250827
  Receipt Date: 20250827
  Transmission Date: 20251020
  Serious: Yes (Other)
  Sender: MYLAN
  Company Number: CA-MYLANLABS-2024M1064043

PATIENT
  Age: 35 Year
  Sex: Male

DRUGS (20)
  1. GABAPENTIN [Suspect]
     Active Substance: GABAPENTIN
     Indication: Alcohol use disorder
     Dosage: 600 MILLIGRAM, HS, RECEIVED AT BEDTIME
     Route: 065
  2. GABAPENTIN [Suspect]
     Active Substance: GABAPENTIN
     Indication: Drug use disorder
     Dosage: 600 MILLIGRAM, HS, RECEIVED AT BEDTIME
  3. GABAPENTIN [Suspect]
     Active Substance: GABAPENTIN
     Indication: Generalised anxiety disorder
     Dosage: 600 MILLIGRAM, HS, RECEIVED AT BEDTIME
  4. GABAPENTIN [Suspect]
     Active Substance: GABAPENTIN
     Indication: Depression
     Dosage: 600 MILLIGRAM, HS, RECEIVED AT BEDTIME
     Route: 065
  5. GABAPENTIN [Suspect]
     Active Substance: GABAPENTIN
     Dosage: 200 MILLIGRAM, BID, DOSE REDUCED
  6. GABAPENTIN [Suspect]
     Active Substance: GABAPENTIN
     Dosage: 200 MILLIGRAM, BID, DOSE REDUCED
  7. GABAPENTIN [Suspect]
     Active Substance: GABAPENTIN
     Dosage: 200 MILLIGRAM, BID, DOSE REDUCED
     Route: 065
  8. GABAPENTIN [Suspect]
     Active Substance: GABAPENTIN
     Dosage: 200 MILLIGRAM, BID, DOSE REDUCED
     Route: 065
  9. GABAPENTIN [Suspect]
     Active Substance: GABAPENTIN
     Dosage: 300 MILLIGRAM, TID
     Route: 065
  10. GABAPENTIN [Suspect]
     Active Substance: GABAPENTIN
     Dosage: 300 MILLIGRAM, TID
  11. GABAPENTIN [Suspect]
     Active Substance: GABAPENTIN
     Dosage: 300 MILLIGRAM, TID
  12. GABAPENTIN [Suspect]
     Active Substance: GABAPENTIN
     Dosage: 300 MILLIGRAM, TID
     Route: 065
  13. KETAMINE [Concomitant]
     Active Substance: KETAMINE
     Indication: Intentional product misuse
  14. KETAMINE [Concomitant]
     Active Substance: KETAMINE
     Indication: Generalised anxiety disorder
     Route: 045
  15. KETAMINE [Concomitant]
     Active Substance: KETAMINE
     Route: 045
  16. KETAMINE [Concomitant]
     Active Substance: KETAMINE
  17. NALTREXONE [Concomitant]
     Active Substance: NALTREXONE
     Indication: Alcohol use disorder
     Dosage: 50 MILLIGRAM, QD
  18. NALTREXONE [Concomitant]
     Active Substance: NALTREXONE
     Dosage: 50 MILLIGRAM, QD
     Route: 065
  19. NALTREXONE [Concomitant]
     Active Substance: NALTREXONE
     Dosage: 50 MILLIGRAM, QD
     Route: 065
  20. NALTREXONE [Concomitant]
     Active Substance: NALTREXONE
     Dosage: 50 MILLIGRAM, QD

REACTIONS (2)
  - Somnolence [Unknown]
  - Off label use [Unknown]
